FAERS Safety Report 4634717-0 (Version None)
Quarter: 2005Q2

REPORT INFORMATION
  Report Type: 
  Country: None (occurrence: None)
  Receive Date: 20050413
  Receipt Date: 20050413
  Transmission Date: 20051028
  Serious: Yes (Other)
  Sender: FDA-Public Use
  Company Number: None

PATIENT
  Age: 60 Year
  Sex: Female
  Weight: 76.2043 kg

DRUGS (2)
  1. DURAGESIC-100 [Suspect]
     Indication: CRANIOTOMY
     Dosage: 1 TOP, Q48   #15
     Dates: start: 20040907
  2. DURAGESIC-100 [Suspect]
     Indication: HEADACHE
     Dosage: 1 TOP, Q48   #15
     Dates: start: 20040907

REACTIONS (2)
  - DRUG INEFFECTIVE [None]
  - PHARMACEUTICAL PRODUCT COMPLAINT [None]
